FAERS Safety Report 9879250 (Version 1)
Quarter: 2014Q1

REPORT INFORMATION
  Report Type: Report from Study
  Country: IT (occurrence: IT)
  Receive Date: 20140206
  Receipt Date: 20140206
  Transmission Date: 20141002
  Serious: Yes (Other)
  Sender: FDA-Public Use
  Company Number: PHHY2014IT014319

PATIENT
  Age: 65 Year
  Sex: 0

DRUGS (2)
  1. ZOLEDRONATE [Suspect]
     Dosage: UNK UKN, UNK
     Dates: start: 20080721
  2. LETROZOLE [Suspect]
     Dosage: UNK UKN, UNK
     Dates: start: 20080721

REACTIONS (1)
  - Disease progression [Unknown]
